FAERS Safety Report 25289852 (Version 1)
Quarter: 2025Q2

REPORT INFORMATION
  Report Type: Spontaneous
  Country: DK (occurrence: DK)
  Receive Date: 20250509
  Receipt Date: 20250509
  Transmission Date: 20250716
  Serious: Yes (Life-Threatening, Hospitalization)
  Sender: TAKEDA
  Company Number: DK-TAKEDA-0200761

PATIENT
  Age: 62 Year
  Sex: Male

DRUGS (23)
  1. LANSOPRAZOLE [Suspect]
     Active Substance: LANSOPRAZOLE
     Indication: Gastric ulcer
     Dosage: 60 MILLIGRAM, QD
     Dates: start: 20080507, end: 20080523
  2. LANSOPRAZOLE [Suspect]
     Active Substance: LANSOPRAZOLE
     Dosage: 120 MILLIGRAM, QD
     Dates: start: 20080507, end: 20080523
  3. PANTOPRAZOLE SODIUM [Suspect]
     Active Substance: PANTOPRAZOLE SODIUM
     Indication: Abdominal pain
     Dosage: 40 MILLIGRAM, QD
     Dates: start: 20080428, end: 20080530
  4. PANTOPRAZOLE SODIUM [Suspect]
     Active Substance: PANTOPRAZOLE SODIUM
     Dosage: 40 MILLIGRAM, QD
     Dates: start: 20080428, end: 20080507
  5. PANTOPRAZOLE SODIUM [Suspect]
     Active Substance: PANTOPRAZOLE SODIUM
     Dosage: 40 MILLIGRAM, QD
     Dates: start: 20080527, end: 20080530
  6. PANTOPRAZOLE [Suspect]
     Active Substance: PANTOPRAZOLE
     Indication: Abdominal pain
     Dosage: 40 MILLIGRAM, QD
     Dates: start: 20080428, end: 20080507
  7. PANTOPRAZOLE [Suspect]
     Active Substance: PANTOPRAZOLE
     Dosage: 40 MILLIGRAM, QD
     Dates: start: 20080527, end: 20080530
  8. CIPROFLOXACIN [Suspect]
     Active Substance: CIPROFLOXACIN
     Indication: Pyrexia
     Dosage: 800 MILLIGRAM, QD
     Dates: start: 20080430, end: 20080503
  9. FLUCONAZOLE [Suspect]
     Active Substance: FLUCONAZOLE
     Indication: Pyrexia
     Dosage: 200 MILLIGRAM, QD
     Dates: start: 20080429, end: 20080519
  10. MEROPENEM [Suspect]
     Active Substance: MEROPENEM
     Indication: Pyrexia
     Dosage: 3000 MILLIGRAM, QD
     Dates: start: 20080511, end: 20080516
  11. MEROPENEM [Suspect]
     Active Substance: MEROPENEM
     Dosage: 1000 MILLIGRAM, QD
     Dates: start: 20080511, end: 20080516
  12. MEROPENEM [Suspect]
     Active Substance: MEROPENEM
     Dates: start: 20080511, end: 20080516
  13. ZINACEF [Concomitant]
     Active Substance: CEFUROXIME SODIUM
     Indication: Pyrexia
     Dosage: 4500 MILLIGRAM, QD
     Dates: start: 20080428, end: 20080430
  14. ZINACEF [Concomitant]
     Active Substance: CEFUROXIME SODIUM
     Dosage: 2250 MILLIGRAM, QD
     Dates: start: 20080430, end: 20080510
  15. ZINACEF [Concomitant]
     Active Substance: CEFUROXIME SODIUM
  16. B-combin [Concomitant]
     Indication: Hypovitaminosis
     Dosage: UNK UNK, TID
     Dates: start: 20080508
  17. B-combin [Concomitant]
     Dosage: 3 DOSAGE FORM, QD
     Dates: start: 20080508
  18. THIAMINE [Concomitant]
     Active Substance: THIAMINE
     Indication: Hypovitaminosis
     Dosage: 300 MILLIGRAM, QD
     Dates: start: 20080428
  19. THIAMINE [Concomitant]
     Active Substance: THIAMINE
  20. THIAMINE [Concomitant]
     Active Substance: THIAMINE
     Dosage: 300 MILLIGRAM, QD
     Dates: start: 20080428
  21. VITAMIN B-COMPLEX [Concomitant]
     Active Substance: DEXPANTHENOL\NIACINAMIDE\PYRIDOXINE HYDROCHLORIDE\RIBOFLAVIN 5^-PHOSPHATE SODIUM\THIAMINE HYDROCHLOR
     Indication: Hypovitaminosis
     Dosage: 3 DOSAGE FORM, QD
  22. CEFUROXIME [Concomitant]
     Active Substance: CEFUROXIME
     Indication: Product used for unknown indication
     Dosage: 4500 MILLIGRAM, QD
     Dates: start: 20080428, end: 20080430
  23. CEFUROXIME [Concomitant]
     Active Substance: CEFUROXIME
     Dosage: 2250 MILLIGRAM, QD
     Dates: start: 20080430, end: 20080510

REACTIONS (8)
  - Paraesthesia [Recovered/Resolved]
  - Pain in extremity [Recovered/Resolved]
  - Oedema peripheral [Unknown]
  - Asthenia [Unknown]
  - Rash [Recovered/Resolved]
  - Toxic epidermal necrolysis [Recovered/Resolved]
  - Rash maculo-papular [Unknown]
  - Tremor [Recovered/Resolved]

NARRATIVE: CASE EVENT DATE: 20080525
